APPROVED DRUG PRODUCT: AMPHETAMINE SULFATE
Active Ingredient: AMPHETAMINE SULFATE
Strength: 5MG
Dosage Form/Route: TABLET;ORAL
Application: A083901 | Product #001
Applicant: LANNETT CO INC
Approved: Aug 31, 1984 | RLD: Yes | RS: No | Type: DISCN